FAERS Safety Report 7649782-6 (Version None)
Quarter: 2011Q3

REPORT INFORMATION
  Report Type: 
  Country: None (occurrence: None)
  Receive Date: 20110727
  Receipt Date: 20110714
  Transmission Date: 20111222
  Serious: Yes (Hospitalization, Other)
  Sender: FDA-Public Use
  Company Number: JPI-P-015903

PATIENT
  Age: 60 Year
  Sex: Female
  Weight: 92.9874 kg

DRUGS (2)
  1. XYREM [Suspect]
     Indication: NARCOLEPSY
     Dosage: (2 IN 1 D),ORAL ; 9 GM (4.5 GM,2 IN 1 D),ORAL
     Route: 048
     Dates: start: 20100101
  2. MULTIPLE UNSPECIFED MEDICATIONS [Concomitant]

REACTIONS (2)
  - MEDICAL DEVICE REMOVAL [None]
  - SPINAL NERVE STIMULATOR IMPLANTATION [None]
